FAERS Safety Report 19835297 (Version 1)
Quarter: 2021Q3

REPORT INFORMATION
  Report Type: Spontaneous
  Country: FR (occurrence: FR)
  Receive Date: 20210915
  Receipt Date: 20210915
  Transmission Date: 20211014
  Serious: Yes (Other)
  Sender: FDA-Public Use
  Company Number: FR-ACCORD-238443

PATIENT
  Age: 44 Year
  Sex: Male

DRUGS (7)
  1. CARBOPLATIN. [Suspect]
     Active Substance: CARBOPLATIN
     Indication: SQUAMOUS CELL CARCINOMA OF THE PAROTID GLAND
     Dosage: 2 CURES
     Route: 042
     Dates: start: 20210406, end: 20210429
  2. DOCETAXEL. [Suspect]
     Active Substance: DOCETAXEL
     Indication: SQUAMOUS CELL CARCINOMA OF THE PAROTID GLAND
     Dosage: 2 CURES
     Route: 042
     Dates: start: 20210406, end: 20210429
  3. TOPALGIC [Concomitant]
  4. CISPLATIN. [Suspect]
     Active Substance: CISPLATIN
     Indication: SQUAMOUS CELL CARCINOMA OF THE PAROTID GLAND
     Dosage: 2 TREATMENT
     Route: 042
     Dates: start: 20210216, end: 20210309
  5. DOLIPRANE [Concomitant]
     Active Substance: ACETAMINOPHEN
  6. DOXYCYCLINE. [Concomitant]
     Active Substance: DOXYCYCLINE
  7. ERBITUX [Concomitant]
     Active Substance: CETUXIMAB

REACTIONS (1)
  - Peripheral ischaemia [Recovering/Resolving]

NARRATIVE: CASE EVENT DATE: 20210429
